FAERS Safety Report 12071571 (Version 3)
Quarter: 2016Q2

REPORT INFORMATION
  Report Type: Spontaneous
  Country: BR (occurrence: BR)
  Receive Date: 20160212
  Receipt Date: 20160517
  Transmission Date: 20160815
  Serious: Yes (Other)
  Sender: FDA-Public Use
  Company Number: BR-AMGEN-BRASP2016015896

PATIENT
  Age: 66 Year
  Sex: Female
  Weight: 81 kg

DRUGS (10)
  1. ENBREL [Suspect]
     Active Substance: ETANERCEPT
     Indication: RHEUMATOID ARTHRITIS
     Dosage: 50 MG, ONCE WEEKLY
     Route: 058
     Dates: start: 201402
  2. FUROSEMIDE. [Concomitant]
     Active Substance: FUROSEMIDE
     Indication: HYPERTENSION
     Dosage: 40 MG, 1X/DAY
  3. AMLODIPINE [Concomitant]
     Active Substance: AMLODIPINE BESYLATE
     Dosage: 5 MG, 1X/DAY
  4. ENALAPRIL [Concomitant]
     Active Substance: ENALAPRIL
     Indication: HYPERTENSION
     Dosage: 20 MG, 2X/DAY
  5. LITHIUM CARBONATE. [Concomitant]
     Active Substance: LITHIUM CARBONATE
     Dosage: UNK
  6. CARBOLITIUM [Concomitant]
     Active Substance: LITHIUM CARBONATE
     Indication: EMOTIONAL DISORDER
     Dosage: 600 MG, 2X/DAY
  7. RIVOTRIL [Concomitant]
     Active Substance: CLONAZEPAM
     Indication: HYPERTENSION
  8. CARBOLITIUM [Concomitant]
     Active Substance: LITHIUM CARBONATE
     Indication: HYPERTENSION
  9. RIVOTRIL [Concomitant]
     Active Substance: CLONAZEPAM
     Indication: SLEEP DISORDER
     Dosage: 2 MG, ONCE AT NIGHT
  10. LASIX [Concomitant]
     Active Substance: FUROSEMIDE
     Dosage: UNK

REACTIONS (2)
  - Condition aggravated [Unknown]
  - Rheumatoid arthritis [Unknown]
